FAERS Safety Report 19565860 (Version 3)
Quarter: 2021Q3

REPORT INFORMATION
  Report Type: Spontaneous
  Country: JP (occurrence: JP)
  Receive Date: 20210714
  Receipt Date: 20210728
  Transmission Date: 20211014
  Serious: Yes (Hospitalization, Other)
  Sender: FDA-Public Use
  Company Number: JP-FERRINGPH-2021FE04484

PATIENT
  Age: 48 Year
  Sex: Male

DRUGS (5)
  1. DESMOPRESSIN KYOWA [Suspect]
     Active Substance: DESMOPRESSIN
     Indication: DIABETES INSIPIDUS
     Dosage: 10 UG
     Route: 065
  2. CORTRIL [Concomitant]
     Active Substance: HYDROCORTISONE
     Dosage: 5 MG
     Route: 065
  3. THYRADIN [Concomitant]
     Active Substance: LEVOTHYROXINE
     Dosage: 100 MG
     Route: 065
  4. CALONAL [Concomitant]
     Active Substance: ACETAMINOPHEN
     Dosage: 1200 MG
     Route: 065
  5. BIOFERMIN [LACTOMIN] [Concomitant]
     Active Substance: DIETARY SUPPLEMENT\PROBIOTICS
     Dosage: 3 DF
     Route: 065

REACTIONS (3)
  - Spinal ligament ossification [Recovering/Resolving]
  - Product prescribing issue [Unknown]
  - Product storage error [Unknown]

NARRATIVE: CASE EVENT DATE: 20210414
